FAERS Safety Report 7652138-3 (Version None)
Quarter: 2011Q3

REPORT INFORMATION
  Report Type: 
  Country: None (occurrence: None)
  Receive Date: 20110803
  Receipt Date: 20110722
  Transmission Date: 20111222
  Serious: Yes (Hospitalization)
  Sender: FDA-Public Use
  Company Number: US-JNJFOC-20110710333

PATIENT
  Age: 73 Year
  Sex: Female

DRUGS (8)
  1. EXTRA STRENGTH TYLENOL [Suspect]
     Indication: FIBROMYALGIA
     Dosage: 1000 MG 2-3 TIMES A DAY AS NECESSARY
     Route: 048
     Dates: start: 20110201
  2. OMEPRAZOLE [Concomitant]
     Indication: ABDOMINAL PAIN UPPER
  3. LEXAPRO [Concomitant]
     Indication: DEPRESSION
  4. HYDROCHLOROTHIAZIDE [Concomitant]
     Indication: HYPERTENSION
  5. EXTRA STRENGTH TYLENOL [Suspect]
     Indication: PAIN
     Dosage: 1000 MG 2-3 TIMES A DAY AS NECESSARY
     Route: 048
     Dates: start: 20110201
  6. LISINOPRIL [Concomitant]
     Indication: HYPERTENSION
  7. EXTRA STRENGTH TYLENOL [Suspect]
     Indication: HEADACHE
     Dosage: 1000 MG 2-3 TIMES A DAY AS NECESSARY
     Route: 048
     Dates: start: 20110201
  8. PROCRIT [Concomitant]
     Indication: ANAEMIA

REACTIONS (4)
  - LOSS OF CONSCIOUSNESS [None]
  - PRODUCT QUALITY ISSUE [None]
  - DIARRHOEA [None]
  - ABDOMINAL PAIN UPPER [None]
